FAERS Safety Report 10588783 (Version 3)
Quarter: 2014Q4

REPORT INFORMATION
  Report Type: Spontaneous
  Country: CN (occurrence: CN)
  Receive Date: 20141117
  Receipt Date: 20141204
  Transmission Date: 20150529
  Serious: Yes (Death)
  Sender: FDA-Public Use
  Company Number: CN-ASTRAZENECA-2014SE82111

PATIENT
  Age: 24054 Day
  Sex: Female

DRUGS (18)
  1. CEFODIZIME [Concomitant]
     Indication: INFECTION
     Route: 042
     Dates: start: 20140920, end: 20140925
  2. MEPREDNISONE [Concomitant]
     Active Substance: MEPREDNISONE
     Indication: HYPERSENSITIVITY
     Route: 030
     Dates: start: 20140925, end: 20140925
  3. INSULIN [Suspect]
     Active Substance: INSULIN NOS
     Indication: DIABETES MELLITUS
     Route: 058
     Dates: start: 20140925, end: 20140925
  4. COBAMAMIDE [Concomitant]
     Active Substance: COBAMAMIDE
     Indication: NEUROPATHY PERIPHERAL
     Route: 042
     Dates: start: 20140922, end: 20140925
  5. MEPREDNISONE [Concomitant]
     Active Substance: MEPREDNISONE
     Indication: INFLAMMATORY BOWEL DISEASE
     Route: 030
     Dates: start: 20140925, end: 20140925
  6. LOW MOLECULAR WEIGHT HEPARIN [Concomitant]
     Active Substance: UNSPECIFIED INGREDIENT
     Indication: EMBOLISM
     Dosage: 8000 OTHER
     Route: 030
     Dates: start: 20140925, end: 20140925
  7. INSULIN [Suspect]
     Active Substance: INSULIN NOS
     Indication: DIABETES MELLITUS
     Route: 058
     Dates: start: 20140925, end: 20140925
  8. WITH YIQI FUMAL [Concomitant]
     Indication: DYSPNOEA
     Route: 042
     Dates: start: 20140920, end: 20140925
  9. POTASSIUM CHLORIDE. [Concomitant]
     Active Substance: POTASSIUM CHLORIDE
     Indication: HYPOKALAEMIA
     Route: 042
     Dates: start: 20140920, end: 20140925
  10. LEVOCARNITINE. [Suspect]
     Active Substance: LEVOCARNITINE
     Indication: CARNITINE DEFICIENCY
     Route: 042
     Dates: start: 20140922, end: 20140925
  11. ESOMEPRAZOLE CODE NOT BROKEN [Suspect]
     Active Substance: ESOMEPRAZOLE
     Indication: STRESS ULCER
     Dosage: TWO TIMES A DAY
     Route: 041
     Dates: start: 20140925, end: 20140925
  12. WITH YIQI FUMAL [Concomitant]
     Indication: PALPITATIONS
     Route: 042
     Dates: start: 20140920, end: 20140925
  13. IPRATROPIUM BROMIDE. [Concomitant]
     Active Substance: IPRATROPIUM BROMIDE
     Indication: BRONCHITIS
     Route: 045
     Dates: start: 20140922, end: 20140925
  14. LANSOPRAZOLE. [Concomitant]
     Active Substance: LANSOPRAZOLE
     Indication: SMALL INTESTINAL RESECTION
     Route: 042
     Dates: start: 20140920, end: 20140925
  15. ALBUMIN [Concomitant]
     Active Substance: ALBUMIN (HUMAN)
     Indication: IMMUNODEFICIENCY
     Route: 030
     Dates: start: 20140925, end: 20140925
  16. MEROPENEM. [Suspect]
     Active Substance: MEROPENEM
     Route: 042
     Dates: start: 20140925, end: 20140926
  17. ESOMEPRAZOLE CODE NOT BROKEN [Suspect]
     Active Substance: ESOMEPRAZOLE
     Indication: STRESS ULCER
     Dosage: TWO TIMES A DAY
     Route: 041
     Dates: start: 20140926, end: 20140926
  18. IPRATROPIUM BROMIDE. [Concomitant]
     Active Substance: IPRATROPIUM BROMIDE
     Indication: ASTHMA
     Route: 045
     Dates: start: 20140922, end: 20140925

REACTIONS (1)
  - Respiratory failure [Fatal]

NARRATIVE: CASE EVENT DATE: 20140926
